FAERS Safety Report 18992623 (Version 1)
Quarter: 2021Q1

REPORT INFORMATION
  Report Type: Spontaneous
  Country: US (occurrence: US)
  Receive Date: 20210310
  Receipt Date: 20210310
  Transmission Date: 20210420
  Serious: Yes (Hospitalization, Other)
  Sender: FDA-Public Use
  Company Number: US-PERRIGO-21US003315

PATIENT
  Age: 48 Year
  Sex: Male

DRUGS (2)
  1. PRILOSEC OTC [Suspect]
     Active Substance: OMEPRAZOLE MAGNESIUM
     Indication: GASTROOESOPHAGEAL REFLUX DISEASE
     Dosage: 20 MG, QD
     Route: 065
     Dates: start: 2009, end: 2017
  2. PREVACID 24 HR [Suspect]
     Active Substance: LANSOPRAZOLE
     Indication: GASTROOESOPHAGEAL REFLUX DISEASE
     Dosage: 15 MG, QD
     Route: 065
     Dates: start: 2009, end: 2017

REACTIONS (9)
  - Renal artery arteriosclerosis [Unknown]
  - Renal failure [Unknown]
  - End stage renal disease [Not Recovered/Not Resolved]
  - Renal artery occlusion [Unknown]
  - Renal artery stenosis [Unknown]
  - Haemodialysis [Unknown]
  - Chronic kidney disease [Not Recovered/Not Resolved]
  - Dialysis [Unknown]
  - Acute kidney injury [Not Recovered/Not Resolved]

NARRATIVE: CASE EVENT DATE: 2012
